FAERS Safety Report 8069962-8 (Version None)
Quarter: 2011Q4

REPORT INFORMATION
  Report Type: 
  Country: None (occurrence: None)
  Receive Date: 20111221
  Receipt Date: 20110810
  Transmission Date: 20120403
  Serious: Yes (Hospitalization, Other)
  Sender: FDA-Public Use
  Company Number: PHEH2011US00703

PATIENT
  Age: 63 Year
  Sex: Female
  Weight: 59.9 kg

DRUGS (1)
  1. EXJADE [Suspect]
     Indication: IRON OVERLOAD
     Dosage: 2000 MG, DAILY, ORAL
     Route: 048
     Dates: start: 20060504, end: 20110805

REACTIONS (2)
  - RENAL FAILURE [None]
  - RENAL DISORDER [None]
